FAERS Safety Report 12744947 (Version 1)
Quarter: 2016Q3

REPORT INFORMATION
  Report Type: Other
  Country: RS (occurrence: RS)
  Receive Date: 20160915
  Receipt Date: 20160915
  Transmission Date: 20161109
  Serious: Yes (Life-Threatening, Hospitalization)
  Sender: FDA-Public Use
  Company Number: RS-NOVEL LABORATORIES, INC-2016-03497

PATIENT
  Age: 30 Year
  Sex: Female

DRUGS (12)
  1. FLUCONAZOLE. [Suspect]
     Active Substance: FLUCONAZOLE
     Indication: HEPATOSPLENIC CANDIDIASIS
     Route: 065
  2. AMSACRINE [Concomitant]
     Active Substance: AMSACRINE
     Indication: ACUTE MYELOID LEUKAEMIA
     Dosage: DAY 1 TO DAY 5
     Route: 040
  3. DOXORUBICIN [Suspect]
     Active Substance: DOXORUBICIN
     Indication: ACUTE MYELOID LEUKAEMIA
     Dosage: DAY 1, 3, 5
     Route: 042
  4. MITOXANTRONE [Suspect]
     Active Substance: MITOXANTRONE HYDROCHLORIDE
     Indication: ACUTE MYELOID LEUKAEMIA
     Dosage: DAY 1 TO DAY 4
     Route: 042
  5. ETOPOSIDE. [Concomitant]
     Active Substance: ETOPOSIDE
     Indication: ACUTE MYELOID LEUKAEMIA
     Dosage: DAY 1 TO DAY 5
     Route: 040
  6. CYTARABINE. [Concomitant]
     Active Substance: CYTARABINE
     Dosage: DAY 1 TO DAY 3
     Route: 042
     Dates: start: 200411
  7. CYTARABINE. [Concomitant]
     Active Substance: CYTARABINE
     Dosage: DAY 1 TO DAY 5
     Route: 041
     Dates: start: 200409
  8. VORICONAZOLE. [Suspect]
     Active Substance: VORICONAZOLE
     Indication: HEPATOSPLENIC CANDIDIASIS
     Route: 065
  9. CYTARABINE. [Concomitant]
     Active Substance: CYTARABINE
     Indication: ACUTE MYELOID LEUKAEMIA
     Dosage: DAY 1 TO DAY 8
     Route: 040
  10. ETOPOSIDE. [Concomitant]
     Active Substance: ETOPOSIDE
     Dosage: DAY 1 TO DAY 5
     Route: 042
     Dates: start: 200409
  11. AMPHOTERICIN B. [Suspect]
     Active Substance: AMPHOTERICIN B
     Indication: HEPATOSPLENIC CANDIDIASIS
     Route: 065
  12. ITRACONAZOLE. [Suspect]
     Active Substance: ITRACONAZOLE
     Indication: HEPATOSPLENIC CANDIDIASIS
     Route: 065

REACTIONS (1)
  - Peripartum cardiomyopathy [Recovered/Resolved]
